FAERS Safety Report 18122433 (Version 1)
Quarter: 2020Q3

REPORT INFORMATION
  Report Type: Spontaneous
  Country: US (occurrence: US)
  Receive Date: 20200807
  Receipt Date: 20200807
  Transmission Date: 20201103
  Serious: Yes (Other)
  Sender: FDA-Public Use
  Company Number: US-AUROBINDO-AUR-APL-2020-037549

PATIENT
  Age: 4 Year
  Sex: Male

DRUGS (7)
  1. BIVALIRUDIN INJECTION [Suspect]
     Active Substance: BIVALIRUDIN
     Dosage: 1.75 MILLIGRAM/KILOGRAM, EVERY HOUR
     Route: 065
  2. BIVALIRUDIN INJECTION [Suspect]
     Active Substance: BIVALIRUDIN
     Dosage: 0.25 MILLIGRAM/KILOGRAM
     Route: 065
  3. BIVALIRUDIN INJECTION [Suspect]
     Active Substance: BIVALIRUDIN
     Dosage: 0.75 MILLIGRAM/KILOGRAM
     Route: 065
  4. BIVALIRUDIN INJECTION [Suspect]
     Active Substance: BIVALIRUDIN
     Dosage: 2 MILLIGRAM/KILOGRAM, EVERY HOUR
     Route: 065
  5. BIVALIRUDIN INJECTION [Suspect]
     Active Substance: BIVALIRUDIN
     Dosage: 0.5 MILLIGRAM/KILOGRAM, EVERY HOUR
     Route: 065
  6. BIVALIRUDIN INJECTION [Suspect]
     Active Substance: BIVALIRUDIN
     Dosage: 2.5 MILLIGRAM/KILOGRAM, EVERY HOUR
     Route: 065
  7. BIVALIRUDIN INJECTION [Suspect]
     Active Substance: BIVALIRUDIN
     Indication: ANTICOAGULANT THERAPY
     Dosage: UNK
     Route: 065

REACTIONS (2)
  - Respiratory tract haemorrhage [Unknown]
  - Off label use [Unknown]
